FAERS Safety Report 7427753-2 (Version None)
Quarter: 2011Q2

REPORT INFORMATION
  Report Type: 
  Country: None (occurrence: None)
  Receive Date: 20110421
  Receipt Date: 20110411
  Transmission Date: 20111010
  Serious: Yes (Hospitalization, Other)
  Sender: FDA-Public Use
  Company Number: US-ELI_LILLY_AND_COMPANY-US200908006112

PATIENT
  Sex: Female
  Weight: 72.109 kg

DRUGS (20)
  1. PROZAC [Suspect]
     Indication: DEPRESSION
  2. GEODON [Concomitant]
     Dosage: 40 MG, 2/D
     Route: 048
  3. WELLBUTRIN [Concomitant]
     Indication: DEPRESSION
     Dosage: 400 MG, UNK
     Dates: start: 20090701
  4. ADVAIR HFA [Concomitant]
     Indication: ASTHMA
     Dosage: 1 D/F, 2/D
     Route: 055
  5. ENABLEX                            /01760401/ [Concomitant]
     Indication: INCONTINENCE
     Dosage: 15 MG, UNK
  6. EFFEXOR [Concomitant]
     Indication: DEPRESSION
     Dosage: 75 MG, 3/D
  7. TYLENOL                                 /SCH/ [Concomitant]
     Dosage: 500 MG, EVERY 6 HRS
  8. GEODON [Concomitant]
     Dosage: 40 MG, 3/D
     Route: 048
  9. XANAX [Concomitant]
     Indication: ANXIETY
     Dosage: 1 MG, 3/D
  10. ATIVAN [Concomitant]
  11. VICODIN [Concomitant]
  12. CYMBALTA [Suspect]
     Dosage: 40 MG, UNK
     Dates: start: 20081218, end: 20081231
  13. CYMBALTA [Suspect]
     Dosage: 30 MG, UNK
     Dates: start: 20090101, end: 20090114
  14. CYMBALTA [Suspect]
     Dosage: 15 MG, UNK
     Dates: start: 20090115, end: 20090128
  15. NEXIUM [Concomitant]
     Dosage: 40 MG, 2/D
     Route: 048
  16. CYMBALTA [Suspect]
     Indication: DEPRESSION
     Dosage: 120 MG, DAILY (1/D)
     Dates: start: 20080301, end: 20080101
  17. CYMBALTA [Suspect]
     Dosage: 60 MG, EACH EVENING
     Dates: start: 20080101, end: 20081218
  18. GEODON [Concomitant]
     Dosage: 40 MG, 4/D
  19. LEVOTHYROXINE SODIUM [Concomitant]
     Indication: HYPOTHYROIDISM
     Dosage: 112 UG, UNK
     Route: 048
  20. SINGULAIR [Concomitant]
     Indication: ASTHMA
     Dosage: 10 MG, DAILY (1/D)

REACTIONS (19)
  - ANXIETY [None]
  - FEELING ABNORMAL [None]
  - PAIN IN EXTREMITY [None]
  - DRUG EFFECT INCREASED [None]
  - DEPRESSED MOOD [None]
  - WRIST FRACTURE [None]
  - HEPATIC FUNCTION ABNORMAL [None]
  - ANGER [None]
  - ROAD TRAFFIC ACCIDENT [None]
  - SUICIDAL IDEATION [None]
  - DRUG WITHDRAWAL SYNDROME [None]
  - ABNORMAL BEHAVIOUR [None]
  - DRUG CLEARANCE DECREASED [None]
  - MALAISE [None]
  - IRRITABILITY [None]
  - SLEEP DISORDER [None]
  - DISTURBANCE IN ATTENTION [None]
  - SELF INJURIOUS BEHAVIOUR [None]
  - DECREASED APPETITE [None]
